FAERS Safety Report 22168289 (Version 2)
Quarter: 2023Q2

REPORT INFORMATION
  Report Type: Spontaneous
  Country: US (occurrence: US)
  Receive Date: 20230403
  Receipt Date: 20230524
  Transmission Date: 20230722
  Serious: No
  Sender: FDA-Public Use
  Company Number: US-PFIZER INC-PV202300061007

PATIENT
  Age: 62 Year
  Sex: Female

DRUGS (3)
  1. CIBINQO [Interacting]
     Active Substance: ABROCITINIB
     Dosage: 100 MG, 1X/DAY
     Dates: end: 2023
  2. PROGESTERONE [Concomitant]
     Active Substance: PROGESTERONE
     Dosage: UNK
  3. ESTRADIOL [Concomitant]
     Active Substance: ESTRADIOL
     Dosage: 0.05 MG/24 HOURS

REACTIONS (1)
  - Drug interaction [Unknown]
